FAERS Safety Report 19860440 (Version 2)
Quarter: 2021Q3

REPORT INFORMATION
  Report Type: Report from Study
  Country: TR (occurrence: TR)
  Receive Date: 20210920
  Receipt Date: 20210930
  Transmission Date: 20211014
  Serious: Yes (Hospitalization)
  Sender: FDA-Public Use
  Company Number: TR-EISAI MEDICAL RESEARCH-EC-2021-099866

PATIENT
  Age: 69 Year
  Sex: Female
  Weight: 58.1 kg

DRUGS (12)
  1. OPEMIN [Concomitant]
     Dates: start: 20180101
  2. ANESTOL [Concomitant]
     Dates: start: 20210827
  3. EUTHYROX [Concomitant]
     Active Substance: LEVOTHYROXINE SODIUM
     Dates: start: 20210101, end: 20210906
  4. LENVATINIB [Suspect]
     Active Substance: LENVATINIB
     Indication: RENAL CELL CARCINOMA
     Route: 048
     Dates: start: 20210709, end: 20210905
  5. PEMBROLIZUMAB. [Suspect]
     Active Substance: PEMBROLIZUMAB
     Indication: RENAL CELL CARCINOMA
     Route: 041
     Dates: start: 20210709, end: 20210709
  6. KARUM [Concomitant]
     Active Substance: CLOPIDOGREL BISULFATE
     Dates: start: 20170101
  7. CRESTOR [Concomitant]
     Active Substance: ROSUVASTATIN CALCIUM
     Dates: start: 20170101
  8. DUPHALAC [Concomitant]
     Active Substance: LACTULOSE
     Dates: start: 20210825, end: 20210827
  9. LENVATINIB [Suspect]
     Active Substance: LENVATINIB
     Route: 048
     Dates: start: 20210921
  10. PEMBROLIZUMAB. [Suspect]
     Active Substance: PEMBROLIZUMAB
     Route: 041
     Dates: start: 20210819, end: 20210819
  11. CONCOR [Concomitant]
     Active Substance: BISOPROLOL FUMARATE
     Dates: start: 20000101
  12. COVERSYL PLUS [Concomitant]
     Active Substance: INDAPAMIDE\PERINDOPRIL
     Dates: start: 20210811, end: 20210908

REACTIONS (1)
  - Hyponatraemia [Recovered/Resolved]

NARRATIVE: CASE EVENT DATE: 20210907
